FAERS Safety Report 18628801 (Version 1)
Quarter: 2020Q4

REPORT INFORMATION
  Report Type: Spontaneous
  Country: LU (occurrence: LU)
  Receive Date: 20201217
  Receipt Date: 20201217
  Transmission Date: 20210114
  Serious: Yes (Other)
  Sender: FDA-Public Use
  Company Number: LU-MYLANLABS-2020M1101940

PATIENT
  Age: 18 Year
  Sex: Male
  Weight: 77.5 kg

DRUGS (14)
  1. NEXIAM                             /01479302/ [Suspect]
     Active Substance: ESOMEPRAZOLE MAGNESIUM
     Indication: PRODUCT USED FOR UNKNOWN INDICATION
     Dosage: 20 MILLIGRAM, QD
     Route: 048
     Dates: start: 20201015
  2. TARADYL [Concomitant]
     Active Substance: KETOROLAC TROMETHAMINE
     Dosage: 20 MILLIGRAM, Q8H
     Route: 042
     Dates: start: 20201013, end: 20201015
  3. TRAMADOL. [Suspect]
     Active Substance: TRAMADOL
     Indication: PRODUCT USED FOR UNKNOWN INDICATION
     Dosage: 100 MILLIGRAM, Q8H
     Route: 042
     Dates: start: 20201013, end: 20201014
  4. VALIUM [Suspect]
     Active Substance: DIAZEPAM
     Indication: ANXIETY
     Dosage: 10 MILLIGRAM, QD
     Route: 048
     Dates: start: 20200924, end: 20201012
  5. CLOPIXOL                           /00876703/ [Suspect]
     Active Substance: ZUCLOPENTHIXOL HYDROCHLORIDE
     Indication: PRODUCT USED FOR UNKNOWN INDICATION
     Dosage: 30 GTT DROPS, QD,POSOLOGY : 5,5,5,5,10 DROPS PER DAY
     Route: 048
     Dates: start: 20200928, end: 20201022
  6. PROZAC [Suspect]
     Active Substance: FLUOXETINE HYDROCHLORIDE
     Indication: DEPRESSION
     Dosage: 20 MG PER DAY, THEN 40 MG THEN 60 MG
     Route: 048
     Dates: start: 20200921
  7. TRADONAL [Suspect]
     Active Substance: TRAMADOL HYDROCHLORIDE
     Indication: PRODUCT USED FOR UNKNOWN INDICATION
     Dosage: 50 MILLIGRAM, Q6H
     Route: 048
     Dates: start: 20201015
  8. SEROQUEL XR [Suspect]
     Active Substance: QUETIAPINE FUMARATE
     Indication: PRODUCT USED FOR UNKNOWN INDICATION
     Dosage: 300 MILLIGRAM, BID
     Route: 048
     Dates: start: 20201022
  9. TRAZODONE [Suspect]
     Active Substance: TRAZODONE HYDROCHLORIDE
     Indication: PRODUCT USED FOR UNKNOWN INDICATION
     Dosage: 100 MILLIGRAM, QD
     Route: 048
     Dates: start: 20201021
  10. IBUPROFEN. [Suspect]
     Active Substance: IBUPROFEN
     Indication: PRODUCT USED FOR UNKNOWN INDICATION
     Dosage: 400 MILLIGRAM, Q8H
     Route: 048
     Dates: start: 20201016
  11. ABILIFY [Suspect]
     Active Substance: ARIPIPRAZOLE
     Indication: AGITATION
     Dosage: 15 MILLIGRAM, QD
     Route: 048
     Dates: start: 20200924, end: 20201023
  12. LYRICA [Suspect]
     Active Substance: PREGABALIN
     Indication: PRODUCT USED FOR UNKNOWN INDICATION
     Dosage: 75 MILLIGRAM, BID
     Route: 048
     Dates: start: 20201008
  13. REMERGON [Suspect]
     Active Substance: MIRTAZAPINE
     Indication: PRODUCT USED FOR UNKNOWN INDICATION
     Dosage: 15 MILLIGRAM, QD
     Route: 048
     Dates: start: 20201005, end: 20201021
  14. LITICAN                            /00690801/ [Concomitant]
     Active Substance: ALIZAPRIDE
     Dosage: 50 MILLIGRAM, Q8H
     Route: 042
     Dates: start: 20201013, end: 20201015

REACTIONS (2)
  - Leukopenia [Not Recovered/Not Resolved]
  - Neutropenia [Not Recovered/Not Resolved]

NARRATIVE: CASE EVENT DATE: 20201013
